FAERS Safety Report 20884288 (Version 1)
Quarter: 2022Q2

REPORT INFORMATION
  Report Type: Spontaneous
  Country: US (occurrence: None)
  Receive Date: 20220526
  Receipt Date: 20220526
  Transmission Date: 20220720
  Serious: No
  Sender: FDA-Public Use
  Company Number: None

PATIENT
  Age: 45 Year
  Sex: Female

DRUGS (1)
  1. GLATIRAMER ACETATE [Suspect]
     Active Substance: GLATIRAMER ACETATE
     Route: 058
     Dates: start: 202106, end: 202204

REACTIONS (2)
  - Anaphylactic shock [None]
  - Injection site reaction [None]

NARRATIVE: CASE EVENT DATE: 20220426
